FAERS Safety Report 7910015-4 (Version None)
Quarter: 2011Q4

REPORT INFORMATION
  Report Type: 
  Country: None (occurrence: None)
  Receive Date: 20111111
  Receipt Date: 20111102
  Transmission Date: 20120403
  Serious: Yes (Other)
  Sender: FDA-Public Use
  Company Number: CA-ROCHE-752503

PATIENT
  Sex: Female
  Weight: 54 kg

DRUGS (14)
  1. ACTEMRA [Suspect]
     Dosage: DOSE LEVEL: 8 MG/KG
     Route: 042
  2. ACTEMRA [Suspect]
     Dosage: DOSE LEVEL: 8 MG/KG
     Route: 042
  3. CALCIUM [Concomitant]
     Dosage: ONE TABLET AT BREAKFAST AND ONE AT SUPPER
     Route: 048
  4. ACTEMRA [Suspect]
     Indication: RHEUMATOID ARTHRITIS
     Route: 042
  5. ACTEMRA [Suspect]
     Dosage: DOSE LEVEL: 8 MG/KG
     Route: 042
  6. METHOTREXATE [Concomitant]
     Route: 048
  7. FOLIC ACID [Concomitant]
     Dosage: NUTRITIONAL SUPPLEMENT
  8. ACTEMRA [Suspect]
     Dosage: DOSE LEVEL: 8 MG/KG
     Route: 042
  9. PREDNISONE TAB [Concomitant]
  10. PANTOPRAZOLE SODIUM [Concomitant]
  11. VITAMIN D [Concomitant]
     Route: 048
  12. SULFASALAZINE [Concomitant]
     Indication: RHEUMATOID ARTHRITIS
     Route: 048
  13. COD LIVER OIL [Concomitant]
  14. ACETAMINOPHEN [Concomitant]

REACTIONS (12)
  - ABDOMINAL DISCOMFORT [None]
  - DIZZINESS [None]
  - COLON CANCER [None]
  - ASPARTATE AMINOTRANSFERASE INCREASED [None]
  - WHITE BLOOD CELL COUNT DECREASED [None]
  - FIBULA FRACTURE [None]
  - RHINORRHOEA [None]
  - MEAN CELL VOLUME DECREASED [None]
  - MEAN CELL HAEMOGLOBIN CONCENTRATION DECREASED [None]
  - ANKLE FRACTURE [None]
  - BLOOD BILIRUBIN INCREASED [None]
  - NASAL CONGESTION [None]
